FAERS Safety Report 15984788 (Version 1)
Quarter: 2019Q1

REPORT INFORMATION
  Report Type: Spontaneous
  Country: GB (occurrence: GB)
  Receive Date: 20190220
  Receipt Date: 20190220
  Transmission Date: 20190418
  Serious: Yes (Hospitalization)
  Sender: FDA-Public Use
  Company Number: GB-BAUSCH-BL-2019-004709

PATIENT
  Age: 61 Year
  Sex: Female

DRUGS (11)
  1. BENZYDAMINE [Concomitant]
     Active Substance: BENZYDAMINE
  2. MACROGOL 4000 [Concomitant]
     Active Substance: POLYETHYLENE GLYCOL 4000
     Indication: PRODUCT USED FOR UNKNOWN INDICATION
  3. DOCUSATE [Concomitant]
     Active Substance: DOCUSATE
     Indication: PRODUCT USED FOR UNKNOWN INDICATION
     Dosage: 50MG/5ML, TAKE 10-20ML
  4. HYDROCORTISONE. [Concomitant]
     Active Substance: HYDROCORTISONE
     Indication: PRODUCT USED FOR UNKNOWN INDICATION
  5. PENTOXIFYLLINE. [Suspect]
     Active Substance: PENTOXIFYLLINE
     Indication: PRODUCT USED FOR UNKNOWN INDICATION
     Route: 065
  6. CYCLIZINE [Concomitant]
     Active Substance: CYCLIZINE
     Indication: PRODUCT USED FOR UNKNOWN INDICATION
  7. OXETACAINE [Concomitant]
     Active Substance: OXETHAZAINE
     Indication: PRODUCT USED FOR UNKNOWN INDICATION
  8. PARACETAMOL [Concomitant]
     Active Substance: ACETAMINOPHEN
     Indication: PRODUCT USED FOR UNKNOWN INDICATION
  9. BENZYDAMINE [Concomitant]
     Active Substance: BENZYDAMINE
     Indication: PRODUCT USED FOR UNKNOWN INDICATION
  10. MST CONTINUS [Concomitant]
     Active Substance: MORPHINE SULFATE
     Indication: PRODUCT USED FOR UNKNOWN INDICATION
  11. GELCLAIR [Concomitant]
     Indication: PRODUCT USED FOR UNKNOWN INDICATION

REACTIONS (1)
  - Gastritis [Unknown]
